FAERS Safety Report 8265995-7 (Version None)
Quarter: 2012Q2

REPORT INFORMATION
  Report Type: 
  Country: None (occurrence: None)
  Receive Date: 20120406
  Receipt Date: 20120402
  Transmission Date: 20120825
  Serious: Yes (Life-Threatening, Other)
  Sender: FDA-Public Use
  Company Number: FR-ABBOTT-12P-056-0920699-00

PATIENT
  Age: 72 Year
  Sex: Female

DRUGS (1)
  1. HUMIRA [Suspect]
     Indication: PSORIATIC ARTHROPATHY
     Route: 058
     Dates: start: 20100624, end: 20120101

REACTIONS (3)
  - EMBOLISM [None]
  - HISTOLOGY ABNORMAL [None]
  - BREAST NEOPLASM [None]
